FAERS Safety Report 9224893 (Version 2)
Quarter: 2013Q2

REPORT INFORMATION
  Report Type: Spontaneous
  Country: US (occurrence: US)
  Receive Date: 20130411
  Receipt Date: 20130517
  Transmission Date: 20140414
  Serious: Yes (Hospitalization)
  Sender: FDA-Public Use
  Company Number: US-SANOFI-AVENTIS-2013SA036794

PATIENT
  Age: 58 Year
  Sex: Female
  Weight: 60.78 kg

DRUGS (16)
  1. AUBAGIO [Suspect]
     Indication: MULTIPLE SCLEROSIS
     Dosage: START DATE: ABOUT A MONTH AGO
     Route: 048
     Dates: start: 20130227
  2. ALENDRONATE SODIUM [Concomitant]
     Indication: OSTEOPOROSIS
  3. CITRACAL + D [Concomitant]
     Dosage: SLOW RELEASE - 8 AM -1 TABLET
  4. VENLAFAXINE [Concomitant]
     Indication: DEPRESSION
     Dosage: 8 AM DAILY
  5. VESICARE [Concomitant]
     Indication: HYPERTONIC BLADDER
     Dosage: 12 PM DAILY
  6. CENTRUM SILVER [Concomitant]
     Dosage: 8 AM -1 TABLET
  7. IRON [Concomitant]
     Indication: ANAEMIA
  8. OCUVITE [Concomitant]
     Dosage: ADULT 50 +- EYE VITAMINS - AFTER SEEING EYE DR - 8 AM -1 TABLET
  9. VITAMIN B12 [Concomitant]
     Indication: VITAMIN B12 DEFICIENCY
     Dosage: MICRO LOZENGE
     Route: 060
  10. VITAMIN D3 [Concomitant]
  11. CYSTEX [Concomitant]
     Dosage: 1 TABLESPOON - AFTER PM CATHETER
  12. NAPROXEN SODIUM [Concomitant]
     Dosage: 2 TABLETS -12 HOUR STRENGTH - AS NEEDED
  13. IBUPROFEN [Concomitant]
     Dosage: 1 TO 2 TABLETS
  14. COUGH AND COLD PREPARATIONS [Concomitant]
     Dosage: 1 DROP - AS NEEDED
  15. TUMS [Concomitant]
     Dosage: TURNS ANTACID/CALCIUM -1 TO 2 TABLETS - AS NEEDED
  16. PM HUMIDIFIER [Concomitant]
     Dosage: OVERNIGHT TO HELP ALLEVIATE OVERACTIVE SINUS

REACTIONS (4)
  - Cystitis [Recovering/Resolving]
  - Dehydration [Unknown]
  - Drug dose omission [Unknown]
  - Dizziness [Not Recovered/Not Resolved]
